FAERS Safety Report 18671918 (Version 1)
Quarter: 2020Q4

REPORT INFORMATION
  Report Type: Spontaneous
  Country: US (occurrence: US)
  Receive Date: 20201228
  Receipt Date: 20201228
  Transmission Date: 20210114
  Serious: Yes (Life-Threatening, Hospitalization, Other)
  Sender: FDA-Public Use
  Company Number: US-HIKMA PHARMACEUTICALS USA INC.-US-H14001-20-52972

PATIENT
  Age: 49 Year
  Sex: Female

DRUGS (4)
  1. PREDNISONE. [Suspect]
     Active Substance: PREDNISONE
     Indication: SYSTEMIC LUPUS ERYTHEMATOSUS
  2. MYCOPHENOLATE MOFETIL. [Suspect]
     Active Substance: MYCOPHENOLATE MOFETIL
     Indication: SYSTEMIC LUPUS ERYTHEMATOSUS
     Dosage: UNKNOWN
     Route: 065
     Dates: start: 2003
  3. PREDNISONE. [Suspect]
     Active Substance: PREDNISONE
     Indication: NEUROMYELITIS OPTICA SPECTRUM DISORDER
     Route: 065
  4. MYCOPHENOLATE MOFETIL. [Suspect]
     Active Substance: MYCOPHENOLATE MOFETIL
     Indication: NEUROMYELITIS OPTICA SPECTRUM DISORDER
     Route: 065

REACTIONS (7)
  - Lung abscess [Recovering/Resolving]
  - Respiratory failure [Recovering/Resolving]
  - Muscle abscess [Recovering/Resolving]
  - Adrenal insufficiency [Recovering/Resolving]
  - Septic embolus [Recovered/Resolved]
  - Nocardiosis [Recovering/Resolving]
  - Brain abscess [Recovering/Resolving]
